FAERS Safety Report 11456145 (Version 3)
Quarter: 2015Q3

REPORT INFORMATION
  Report Type: Report from Study
  Country: SE (occurrence: SE)
  Receive Date: 20150903
  Receipt Date: 20150921
  Transmission Date: 20151125
  Serious: Yes (Hospitalization)
  Sender: FDA-Public Use
  Company Number: SE-009507513-1509SWE001455

PATIENT
  Age: 71 Year
  Sex: Male

DRUGS (2)
  1. PEMBROLIZUMAB. [Suspect]
     Active Substance: PEMBROLIZUMAB
     Indication: METASTATIC MALIGNANT MELANOMA
     Dosage: 2 MG/KG, Q3W
     Route: 042
  2. BETAMETHASONE. [Suspect]
     Active Substance: BETAMETHASONE
     Indication: THYROIDITIS
     Dosage: INTIAL DOSE: 16 TABLETS, REDUCED DOSE WITH END ON 17-AUG-2015
     Dates: start: 20150811, end: 20150817

REACTIONS (3)
  - Hypovolaemia [Unknown]
  - Electrolyte imbalance [Unknown]
  - Renal failure [Unknown]

NARRATIVE: CASE EVENT DATE: 20150830
